FAERS Safety Report 6496579-9 (Version None)
Quarter: 2009Q4

REPORT INFORMATION
  Report Type: 
  Country: None (occurrence: None)
  Receive Date: 20091214
  Receipt Date: 20091208
  Transmission Date: 20100525
  Serious: Yes (Other)
  Sender: FDA-Public Use
  Company Number: US-GENENTECH-292814

PATIENT
  Sex: Female
  Weight: 53.6 kg

DRUGS (2)
  1. NUTROPIN AQ [Suspect]
     Indication: GROWTH RETARDATION
     Dosage: 5.2 MG, QD
     Route: 058
     Dates: start: 20030601, end: 20090912
  2. SYNTHROID [Concomitant]
     Indication: DRUG USE FOR UNKNOWN INDICATION
     Dosage: 50 A?G, QD
     Dates: start: 20090101

REACTIONS (1)
  - JUVENILE MELANOMA BENIGN [None]
